FAERS Safety Report 22752083 (Version 5)
Quarter: 2024Q1

REPORT INFORMATION
  Report Type: Report from Study
  Country: US (occurrence: US)
  Receive Date: 20230726
  Receipt Date: 20240213
  Transmission Date: 20240410
  Serious: Yes (Hospitalization)
  Sender: FDA-Public Use
  Company Number: US-PFIZER INC-PV202300090230

PATIENT
  Age: 86 Year
  Sex: Female

DRUGS (2)
  1. VYNDAMAX [Suspect]
     Active Substance: TAFAMIDIS
     Indication: Amyloidosis
     Dosage: 1 CAPSULE BY MOUTH DAILY
     Route: 048
     Dates: start: 20221111
  2. TYLENOL 8HR [Concomitant]
     Active Substance: ACETAMINOPHEN
     Dosage: 650 MG

REACTIONS (8)
  - Pharyngeal swelling [Unknown]
  - Oropharyngeal pain [Unknown]
  - Dysphagia [Unknown]
  - Fatigue [Not Recovered/Not Resolved]
  - Tooth disorder [Not Recovered/Not Resolved]
  - Asthenia [Not Recovered/Not Resolved]
  - Depression [Not Recovered/Not Resolved]
  - Product dose omission issue [Unknown]
